FAERS Safety Report 21114695 (Version 1)
Quarter: 2022Q3

REPORT INFORMATION
  Report Type: Spontaneous
  Country: US (occurrence: US)
  Receive Date: 20220721
  Receipt Date: 20220721
  Transmission Date: 20221027
  Serious: No
  Sender: FDA-Public Use
  Company Number: US-MEDEXUS PHARMA, INC.-2022MED00077

PATIENT
  Sex: Female

DRUGS (3)
  1. RASUVO [Suspect]
     Active Substance: METHOTREXATE SODIUM
     Indication: Rheumatoid arthritis
     Dosage: 15 MG, 1X/WEEK
     Dates: end: 202112
  2. RASUVO [Suspect]
     Active Substance: METHOTREXATE SODIUM
     Dosage: 15 MG, 1X/WEEK
     Dates: start: 202112, end: 202203
  3. RASUVO [Suspect]
     Active Substance: METHOTREXATE SODIUM
     Dosage: 15 MG, 1X/WEEK
     Dates: start: 2022, end: 2022

REACTIONS (6)
  - Pain [Unknown]
  - Pain in extremity [Not Recovered/Not Resolved]
  - Joint swelling [Not Recovered/Not Resolved]
  - Arthralgia [Not Recovered/Not Resolved]
  - Hepatic enzyme increased [Unknown]
  - Nasopharyngitis [Recovered/Resolved]

NARRATIVE: CASE EVENT DATE: 20210101
